FAERS Safety Report 12855080 (Version 2)
Quarter: 2016Q4

REPORT INFORMATION
  Report Type: Report from Study
  Country: US (occurrence: US)
  Receive Date: 20161017
  Receipt Date: 20161106
  Transmission Date: 20170207
  Serious: Yes (Hospitalization, Other)
  Sender: FDA-Public Use
  Company Number: US-ASTRAZENECA-2016SF05492

PATIENT
  Age: 57 Year
  Sex: Male
  Weight: 181.4 kg

DRUGS (1)
  1. CRESTOR [Suspect]
     Active Substance: ROSUVASTATIN CALCIUM
     Indication: HYPERLIPIDAEMIA
     Route: 048

REACTIONS (13)
  - Pulmonary embolism [Unknown]
  - White blood cell count decreased [Unknown]
  - Fall [Unknown]
  - Septic shock [Unknown]
  - Gastrointestinal haemorrhage [Unknown]
  - Lung disorder [Unknown]
  - Breast cancer [Unknown]
  - Carbon dioxide increased [Unknown]
  - Femoral neck fracture [Unknown]
  - Diverticular perforation [Unknown]
  - Gallbladder disorder [Unknown]
  - PO2 decreased [Unknown]
  - Foreign body embolism [Unknown]

NARRATIVE: CASE EVENT DATE: 2009
